FAERS Safety Report 6686512-9 (Version None)
Quarter: 2010Q2

REPORT INFORMATION
  Report Type: 
  Country: None (occurrence: None)
  Receive Date: 20100419
  Receipt Date: 20100409
  Transmission Date: 20101027
  Serious: Yes (Disabling)
  Sender: FDA-Public Use
  Company Number: FR-ROCHE-696553

PATIENT
  Sex: Female

DRUGS (5)
  1. HERCEPTIN [Suspect]
     Indication: BREAST CANCER
     Dosage: FORM:POWDER FOR DRIP SOLUTION
     Route: 042
     Dates: start: 20070401
  2. TAXOTERE [Suspect]
     Indication: BREAST CANCER
     Route: 042
     Dates: start: 20060801, end: 20061201
  3. FLUOROURACIL [Suspect]
     Indication: BREAST CANCER
     Dosage: DRUG:FLUOROURACILE
     Route: 042
     Dates: start: 20060801, end: 20061201
  4. EPIRUBICIN [Suspect]
     Indication: BREAST CANCER
     Route: 042
     Dates: start: 20060801, end: 20061201
  5. ENDOXAN [Suspect]
     Indication: BREAST CANCER
     Route: 042
     Dates: start: 20060801, end: 20061201

REACTIONS (1)
  - ALOPECIA [None]
